FAERS Safety Report 5723610-8 (Version None)
Quarter: 2008Q2

REPORT INFORMATION
  Report Type: 
  Country: None (occurrence: None)
  Receive Date: 20080430
  Receipt Date: 20080430
  Transmission Date: 20081010
  Serious: Yes (Hospitalization)
  Sender: FDA-Public Use
  Company Number: A0725538A

PATIENT
  Age: 36 Year
  Sex: Female

DRUGS (2)
  1. ALLI [Suspect]
     Indication: WEIGHT LOSS DIET
     Dates: start: 20080420, end: 20080428
  2. VITAMIN [Concomitant]

REACTIONS (7)
  - ASTHENIA [None]
  - EATING DISORDER [None]
  - FATIGUE [None]
  - MALAISE [None]
  - NEPHROLITHIASIS [None]
  - PYELONEPHRITIS [None]
  - VOMITING [None]
